FAERS Safety Report 12185684 (Version 1)
Quarter: 2016Q1

REPORT INFORMATION
  Report Type: Spontaneous
  Country: US (occurrence: US)
  Receive Date: 20160316
  Receipt Date: 20160316
  Transmission Date: 20160526
  Serious: Yes (Hospitalization)
  Sender: FDA-Public Use
  Company Number: US-009507513-1603USA005949

PATIENT
  Sex: Male
  Weight: 56.7 kg

DRUGS (4)
  1. COZAAR [Suspect]
     Active Substance: LOSARTAN POTASSIUM
     Indication: HYPERTENSION
     Dosage: 50 MG, QD
     Route: 048
     Dates: start: 2013, end: 201512
  2. PNEUMOCOCCAL VACCINE (UNSPECIFIED) [Concomitant]
     Indication: PROPHYLAXIS
     Dates: start: 201411, end: 201411
  3. PROVENTIL [Suspect]
     Active Substance: ALBUTEROL
     Indication: PULMONARY CONGESTION
     Dosage: 1 PUFF, AS NEEDED
     Dates: start: 201512
  4. INSULIN DETEMIR [Concomitant]
     Active Substance: INSULIN DETEMIR
     Indication: TYPE 2 DIABETES MELLITUS
     Dosage: 20MG INJECTION AT NIGHT
     Dates: start: 201411

REACTIONS (7)
  - Pneumonia [Not Recovered/Not Resolved]
  - Somnolence [Recovered/Resolved]
  - Palpitations [Recovering/Resolving]
  - Dizziness [Recovering/Resolving]
  - Pneumonia [Recovered/Resolved]
  - Vision blurred [Recovering/Resolving]
  - Asthenia [Recovering/Resolving]

NARRATIVE: CASE EVENT DATE: 2013
